FAERS Safety Report 6807690-4 (Version None)
Quarter: 2010Q2

REPORT INFORMATION
  Report Type: 
  Country: None (occurrence: None)
  Receive Date: 20100629
  Receipt Date: 20081103
  Transmission Date: 20101027
  Serious: Yes (Other)
  Sender: FDA-Public Use
  Company Number: US-PFIZER INC-2008094159

PATIENT
  Sex: Male
  Weight: 72.727 kg

DRUGS (4)
  1. REVATIO [Suspect]
     Indication: PULMONARY ARTERIAL HYPERTENSION
     Route: 048
  2. BOSENTAN [Concomitant]
  3. PREDNISONE [Concomitant]
  4. WARFARIN [Concomitant]

REACTIONS (1)
  - DEAFNESS [None]
